FAERS Safety Report 7404707-3 (Version None)
Quarter: 2011Q2

REPORT INFORMATION
  Report Type: 
  Country: None (occurrence: None)
  Receive Date: 20110411
  Receipt Date: 20110401
  Transmission Date: 20111010
  Serious: No
  Sender: FDA-Public Use
  Company Number: US-BIOGENIDEC-2011BI012561

PATIENT
  Age: 47 Year
  Sex: Female

DRUGS (5)
  1. HYDROCODONE [Concomitant]
     Indication: MUSCLE SPASTICITY
     Dates: start: 20010101
  2. BOTOX [Concomitant]
     Indication: BLADDER SPASM
     Dates: start: 20090101
  3. DILAUDID [Concomitant]
     Indication: MUSCLE SPASTICITY
     Dates: start: 20010101
  4. BOTOX [Concomitant]
     Indication: MUSCLE SPASTICITY
     Dates: start: 20090101
  5. TYSABRI [Suspect]
     Indication: MULTIPLE SCLEROSIS
     Route: 042
     Dates: start: 20101220

REACTIONS (2)
  - OEDEMA PERIPHERAL [None]
  - SWELLING [None]
